FAERS Safety Report 19728618 (Version 1)
Quarter: 2021Q3

REPORT INFORMATION
  Report Type: Spontaneous
  Country: DE (occurrence: DE)
  Receive Date: 20210820
  Receipt Date: 20210820
  Transmission Date: 20211014
  Serious: Yes (Other)
  Sender: FDA-Public Use
  Company Number: DE-MYLANLABS-2021M1048050

PATIENT
  Sex: Female

DRUGS (1)
  1. HULIO [Suspect]
     Active Substance: ADALIMUMAB-FKJP
     Indication: OSTEOPATHIC TREATMENT
     Dosage: UNK
     Dates: start: 202102

REACTIONS (4)
  - Pain [Unknown]
  - Malaise [Unknown]
  - Pulpitis dental [Unknown]
  - Stomatitis [Unknown]

NARRATIVE: CASE EVENT DATE: 202104
